FAERS Safety Report 4695021-8 (Version None)
Quarter: 2005Q2

REPORT INFORMATION
  Report Type: 
  Country: None (occurrence: None)
  Receive Date: 20050614
  Receipt Date: 20050209
  Transmission Date: 20051028
  Serious: No
  Sender: FDA-Public Use
  Company Number: USA050290316

PATIENT
  Sex: Male

DRUGS (2)
  1. CIALIS [Suspect]
     Indication: RADICAL PROSTATECTOMY
     Dosage: 20 MG/1 EVERY OTHER DAY
  2. VITAMINS [Concomitant]

REACTIONS (3)
  - ARTHRALGIA [None]
  - BACK PAIN [None]
  - INSOMNIA [None]
